FAERS Safety Report 9506388 (Version 1)
Quarter: 2013Q1

REPORT INFORMATION
  Report Type: Spontaneous
  Country: US (occurrence: None)
  Receive Date: 20130301
  Receipt Date: 20130301
  Transmission Date: 20140127
  Serious: Yes (Hospitalization, Other)
  Sender: FDA-Public Use
  Company Number: RB-42791-2012

PATIENT
  Age: 49 Year
  Sex: Female

DRUGS (8)
  1. BUPRENORPHINE [Suspect]
     Indication: DRUG DEPENDENCE
     Route: 060
     Dates: start: 201109
  2. BOTOX [Suspect]
     Indication: PRODUCT USED FOR UNKNOWN INDICATION
  3. DIAZEPAM [Concomitant]
  4. NEXIUM [Concomitant]
  5. APO-KETEROLAC [Concomitant]
  6. LEXAPRO [Concomitant]
  7. AMBIEN [Concomitant]
  8. METHYLPHENIDATE [Concomitant]

REACTIONS (8)
  - Muscle spasms [None]
  - Headache [None]
  - Fall [None]
  - Constipation [None]
  - Musculoskeletal disorder [None]
  - Hypoaesthesia [None]
  - Muscular weakness [None]
  - Back pain [None]
